FAERS Safety Report 10080354 (Version 7)
Quarter: 2014Q3

REPORT INFORMATION
  Report Type: Spontaneous
  Country: US (occurrence: US)
  Receive Date: 20140415
  Receipt Date: 20140825
  Transmission Date: 20150326
  Serious: Yes (Death)
  Sender: FDA-Public Use
  Company Number: US-JNJFOC-20140408672

PATIENT
  Age: 16 Year
  Sex: Female
  Weight: 47.17 kg

DRUGS (3)
  1. TYLENOL REGULAR STRENGTH [Suspect]
     Active Substance: ACETAMINOPHEN
     Indication: ABDOMINAL PAIN UPPER
     Route: 048
     Dates: start: 20110406, end: 20110411
  2. TYLENOL REGULAR STRENGTH [Suspect]
     Active Substance: ACETAMINOPHEN
     Indication: BACK PAIN
     Route: 048
     Dates: start: 20110406, end: 20110411
  3. VICODIN [Suspect]
     Active Substance: ACETAMINOPHEN\HYDROCODONE BITARTRATE
     Indication: PRODUCT USED FOR UNKNOWN INDICATION

REACTIONS (8)
  - Toxicity to various agents [Fatal]
  - Hepatotoxicity [Unknown]
  - Hepatic encephalopathy [Unknown]
  - Coagulopathy [Unknown]
  - Overdose [Unknown]
  - Acute hepatic failure [Fatal]
  - Pneumonia [Unknown]
  - Acute respiratory failure [Unknown]

NARRATIVE: CASE EVENT DATE: 201104
